FAERS Safety Report 24010972 (Version 3)
Quarter: 2024Q4

REPORT INFORMATION
  Report Type: Spontaneous
  Country: JP (occurrence: JP)
  Receive Date: 20240625
  Receipt Date: 20241114
  Transmission Date: 20250115
  Serious: Yes (Hospitalization, Other)
  Sender: ALEXION PHARMACEUTICALS
  Company Number: 2024A143775

PATIENT
  Age: 60 Year

DRUGS (14)
  1. LYNPARZA [Suspect]
     Active Substance: OLAPARIB
     Indication: Ovarian cancer
     Dosage: 300 MILLIGRAM, BID
  2. LYNPARZA [Suspect]
     Active Substance: OLAPARIB
     Dosage: 300 MILLIGRAM, BID
  3. LYNPARZA [Suspect]
     Active Substance: OLAPARIB
     Dosage: 300 MILLIGRAM, BID
  4. LYNPARZA [Suspect]
     Active Substance: OLAPARIB
     Dosage: 300 MILLIGRAM, BID
  5. AVASTIN [Suspect]
     Active Substance: BEVACIZUMAB
     Indication: Ovarian cancer
     Dosage: DOSE UNKNOWN
  6. AVASTIN [Suspect]
     Active Substance: BEVACIZUMAB
     Dosage: DOSE UNKNOWN
  7. HERBALS [Suspect]
     Active Substance: HERBALS
     Indication: Product used for unknown indication
     Dosage: DOSE UNKNOWN
     Route: 065
  8. HERBALS [Suspect]
     Active Substance: HERBALS
     Dosage: DOSE UNKNOWN
  9. HERBALS [Suspect]
     Active Substance: HERBALS
     Dosage: DOSE UNKNOWN
     Route: 065
  10. HERBALS [Suspect]
     Active Substance: HERBALS
     Dosage: DOSE UNKNOWN
  11. HERBALS [Suspect]
     Active Substance: HERBALS
     Indication: Product used for unknown indication
     Dosage: DOSE UNKNOWN
     Route: 065
  12. HERBALS [Suspect]
     Active Substance: HERBALS
     Dosage: DOSE UNKNOWN
  13. HERBALS [Suspect]
     Active Substance: HERBALS
     Dosage: DOSE UNKNOWN
     Route: 065
  14. HERBALS [Suspect]
     Active Substance: HERBALS
     Dosage: DOSE UNKNOWN

REACTIONS (1)
  - Interstitial lung disease [Recovered/Resolved]
